FAERS Safety Report 5123229-6 (Version None)
Quarter: 2006Q4

REPORT INFORMATION
  Report Type: 
  Country: None (occurrence: None)
  Receive Date: 20061005
  Receipt Date: 20060925
  Transmission Date: 20070319
  Serious: Yes (Hospitalization)
  Sender: FDA-Public Use
  Company Number: 2006010590

PATIENT
  Age: 75 Year
  Sex: Male
  Weight: 73 kg

DRUGS (14)
  1. SUTENT [Suspect]
     Indication: RENAL CELL CARCINOMA STAGE UNSPECIFIED
     Dosage: 50 MG, 1 IN 1 D, ORAL
     Route: 048
     Dates: start: 20051129
  2. LANTUS [Concomitant]
  3. NICORANDIL [Concomitant]
  4. EUROBIOL      (PANCREATIN) [Concomitant]
  5. TETRAZEPAM              (TETRAZEPAM) [Concomitant]
  6. LEVOTHYROXINE SODIUM [Concomitant]
  7. NOVONORM (REPAGLINIDE) [Concomitant]
  8. ANDRACTIM           (ANDROSTANOLONE) [Concomitant]
  9. RHINOFLUIMUCIL [Concomitant]
  10. HEXAQUINE       (NIAOULI OIL, QUININE BENZOATE, THIAMINE HYDROCHLORIDE [Concomitant]
  11. ATURGYL   (FEXOFENADINE HCL) [Concomitant]
  12. OMIX           (TAMSULOSIN HYDROCHLORIDE) [Concomitant]
  13. LANSOPRAZOLE [Concomitant]
  14. CORTISAL (GLYCOL SALICYLATE, PREDNISOLONE) [Concomitant]

REACTIONS (3)
  - ANGINA UNSTABLE [None]
  - ATRIOVENTRICULAR BLOCK FIRST DEGREE [None]
  - TROPONIN INCREASED [None]
